FAERS Safety Report 19681554 (Version 1)
Quarter: 2021Q3

REPORT INFORMATION
  Report Type: Other
  Country: JP (occurrence: JP)
  Receive Date: 20210810
  Receipt Date: 20210810
  Transmission Date: 20211014
  Serious: Yes (Life-Threatening, Hospitalization)
  Sender: FDA-Public Use
  Company Number: JP-NOSTRUM LABORATORIES, INC.-2114832

PATIENT
  Age: 52 Year
  Sex: Male

DRUGS (2)
  1. OLANZAPINE. [Concomitant]
     Active Substance: OLANZAPINE
     Route: 048
  2. VALPROIC ACID. [Suspect]
     Active Substance: VALPROIC ACID
     Indication: MANIA
     Route: 048

REACTIONS (2)
  - Pancreatitis acute [Recovered/Resolved]
  - Mania [Recovered/Resolved]
